FAERS Safety Report 24984548 (Version 1)
Quarter: 2025Q1

REPORT INFORMATION
  Report Type: Other
  Country: FR (occurrence: FR)
  Receive Date: 20250219
  Receipt Date: 20250219
  Transmission Date: 20250408
  Serious: Yes (Hospitalization, Other)
  Sender: ZYDUS PHARM
  Company Number: None

PATIENT

DRUGS (1)
  1. TRAMADOL [Suspect]
     Active Substance: TRAMADOL
     Indication: Product used for unknown indication
     Route: 048
     Dates: start: 2020

REACTIONS (6)
  - Abnormal weight gain [Not Recovered/Not Resolved]
  - Illicit prescription attainment [Not Recovered/Not Resolved]
  - Suicide attempt [Recovered/Resolved]
  - Depressed mood [Not Recovered/Not Resolved]
  - Drug dependence [Not Recovered/Not Resolved]
  - Irregular sleep wake rhythm disorder [Not Recovered/Not Resolved]

NARRATIVE: CASE EVENT DATE: 20200101
